FAERS Safety Report 14544237 (Version 2)
Quarter: 2018Q1

REPORT INFORMATION
  Report Type: Spontaneous
  Country: AT (occurrence: AT)
  Receive Date: 20180216
  Receipt Date: 20180305
  Transmission Date: 20180509
  Serious: Yes (Hospitalization)
  Sender: FDA-Public Use
  Company Number: AT-LPDUSPRD-20180148

PATIENT
  Age: 37 Year
  Sex: Female

DRUGS (3)
  1. FERRETAB (FERROUS FUMARATE) [Suspect]
     Active Substance: FERROUS FUMARATE
     Dosage: 1 IN 1 D
     Route: 048
     Dates: start: 2017, end: 201709
  2. FERINJECT [Suspect]
     Active Substance: FERRIC CARBOXYMALTOSE
     Dosage: 500 MG
     Route: 041
     Dates: start: 20170911, end: 20170911
  3. ERYSOL [Concomitant]
     Dosage: UNKNOWN
     Route: 042
     Dates: start: 201709

REACTIONS (18)
  - Vomiting [Unknown]
  - Abdominal pain upper [Unknown]
  - Nausea [Unknown]
  - Product preparation error [None]
  - Hyperventilation [Unknown]
  - Vitamin B12 deficiency [Not Recovered/Not Resolved]
  - Incorrect drug administration duration [Unknown]
  - Haemoglobin decreased [None]
  - Incorrect drug administration rate [None]
  - Pregnancy [None]
  - Dyspnoea [Unknown]
  - Tachycardia [Unknown]
  - Hypotension [Unknown]
  - Maternal exposure during pregnancy [None]
  - Abdominal pain [Unknown]
  - Exposure during pregnancy [Unknown]
  - Blood pressure decreased [Unknown]
  - Transferrin saturation decreased [None]

NARRATIVE: CASE EVENT DATE: 20170911
